FAERS Safety Report 19419095 (Version 1)
Quarter: 2021Q2

REPORT INFORMATION
  Report Type: Spontaneous
  Country: FR (occurrence: FR)
  Receive Date: 20210615
  Receipt Date: 20210615
  Transmission Date: 20210717
  Serious: Yes (Other)
  Sender: FDA-Public Use
  Company Number: FR-MYLANLABS-2021M1034136

PATIENT
  Age: 6 Decade
  Sex: Female

DRUGS (2)
  1. TAMOXIFEN [Suspect]
     Active Substance: TAMOXIFEN
     Dosage: 10 MILLIGRAM
     Route: 048
     Dates: end: 2012
  2. TAMOXIFEN [Suspect]
     Active Substance: TAMOXIFEN
     Indication: BREAST CANCER
     Dosage: UNKNOWN DOSE AND FREQUENCY
     Route: 048
     Dates: start: 201103

REACTIONS (2)
  - Breast cancer recurrent [Unknown]
  - Drug intolerance [Unknown]

NARRATIVE: CASE EVENT DATE: 201103
